FAERS Safety Report 14228529 (Version 1)
Quarter: 2017Q4

REPORT INFORMATION
  Report Type: Spontaneous
  Country: KP (occurrence: KP)
  Receive Date: 20171128
  Receipt Date: 20171128
  Transmission Date: 20180321
  Serious: Yes (Other)
  Sender: FDA-Public Use
  Company Number: KP-CIPLA LTD.-2017KP21176

PATIENT

DRUGS (11)
  1. ETOPOSIDE. [Suspect]
     Active Substance: ETOPOSIDE
     Dosage: 250 MG/M2, UNK (FIRST HIGH DOSE CHEMOTHERAPY)
     Route: 065
  2. CYCLOPHOSPHAMIDE. [Suspect]
     Active Substance: CYCLOPHOSPHAMIDE
     Indication: BRAIN NEOPLASM
     Dosage: 1500 MG/M2, UNK (6 CYCLES OF INDUCTION CHEMOTHERAPY)
     Route: 065
  3. THIOTEPA. [Suspect]
     Active Substance: THIOTEPA
     Indication: BRAIN NEOPLASM
     Dosage: 300 MG/M2, UNK, (FIRST HIGH DOSE CHEMOTHERAPY)
     Route: 065
  4. CARBOPLATIN. [Suspect]
     Active Substance: CARBOPLATIN
     Dosage: 500 MG/M2, UNK (FIRST HIGH DOSE CHEMOTHERAPY)
     Route: 065
  5. CISPLATIN. [Suspect]
     Active Substance: CISPLATIN
     Indication: BRAIN NEOPLASM
     Dosage: 90 MG/M2, UNK (6 CYCLES OF INDUCTION CHEMOTHERAPY)
     Route: 065
  6. IFOSFAMIDE. [Suspect]
     Active Substance: IFOSFAMIDE
     Indication: BRAIN NEOPLASM
     Dosage: 1500 MG/M2, UNK, (6 CYCLES OF INDUCTION CHEMOTHERAPY)
     Route: 065
  7. ETOPOSIDE. [Suspect]
     Active Substance: ETOPOSIDE
     Indication: BRAIN NEOPLASM
     Dosage: 75 MG/M2, UNK (6 CYCLES OF INDUCTION CHEMOTHERAPY) CECV AND CEIV
     Route: 065
  8. MELPHALAN. [Suspect]
     Active Substance: MELPHALAN
     Indication: BRAIN NEOPLASM
     Dosage: 60 MG/M2, UNK, (FIRST HIGH DOSE CHEMOTHERAPY)
     Route: 065
  9. VINCRISTINE [Suspect]
     Active Substance: VINCRISTINE
     Indication: BRAIN NEOPLASM
     Dosage: 1.5 MG/M2/DAY, UNK (6 CYCLES OF INDUCTION CHEMOTHERAPY) CECV AND CEIV
     Route: 065
  10. CARBOPLATIN. [Suspect]
     Active Substance: CARBOPLATIN
     Indication: BRAIN NEOPLASM
     Dosage: 300 MG/M2/DAY, UNK (6 CYCLES OF INDUCTION CHEMOTHERAPY)
     Route: 065
  11. CYCLOPHOSPHAMIDE. [Suspect]
     Active Substance: CYCLOPHOSPHAMIDE
     Dosage: 1500 MG/M2, UNK (FIRST HIGH DOSE CHEMOTHERAPY)
     Route: 065

REACTIONS (1)
  - Neoplasm progression [Unknown]
